FAERS Safety Report 11672113 (Version 1)
Quarter: 2015Q4

REPORT INFORMATION
  Report Type: Spontaneous
  Country: US (occurrence: US)
  Receive Date: 20151027
  Receipt Date: 20151027
  Transmission Date: 20160304
  Serious: No
  Sender: FDA-Public Use
  Company Number: US-ELI_LILLY_AND_COMPANY-US201006005482

PATIENT
  Sex: Female

DRUGS (2)
  1. LYRICA [Concomitant]
     Active Substance: PREGABALIN
  2. FORTEO [Suspect]
     Active Substance: TERIPARATIDE
     Indication: OSTEOPOROSIS
     Dosage: 20 UG, DAILY (1/D)
     Dates: start: 20100310

REACTIONS (4)
  - Bone disorder [Unknown]
  - Alopecia [Unknown]
  - Injection site swelling [Unknown]
  - Injection site erythema [Unknown]
